FAERS Safety Report 13508005 (Version 2)
Quarter: 2017Q3

REPORT INFORMATION
  Report Type: Spontaneous
  Country: FR (occurrence: FR)
  Receive Date: 20170503
  Receipt Date: 20170825
  Transmission Date: 20171127
  Serious: Yes (Hospitalization)
  Sender: FDA-Public Use
  Company Number: FR-ORION CORPORATION ORION PHARMA-TREX2017-1298

PATIENT
  Age: 14 Year
  Sex: Male

DRUGS (3)
  1. HUMIRA [Suspect]
     Active Substance: ADALIMUMAB
     Indication: JUVENILE IDIOPATHIC ARTHRITIS
     Dosage: STRENGTH: 40/0.8 MG
     Route: 058
     Dates: start: 201206, end: 20170121
  2. SPECIAFOLDINE [Concomitant]
     Active Substance: FOLIC ACID
     Route: 048
  3. IMETH [Suspect]
     Active Substance: METHOTREXATE SODIUM
     Indication: JUVENILE IDIOPATHIC ARTHRITIS
     Dosage: STRENGTH: 10 MG
     Route: 048
     Dates: end: 20170121

REACTIONS (9)
  - Product use in unapproved indication [Unknown]
  - Histiocytosis haematophagic [Unknown]
  - Thrombocytopenia [Not Recovered/Not Resolved]
  - Varicella [Recovered/Resolved]
  - Streptococcal infection [Unknown]
  - Liver function test increased [Not Recovered/Not Resolved]
  - Acute fatty liver of pregnancy [Recovering/Resolving]
  - Back pain [Unknown]
  - Drug administered to patient of inappropriate age [Unknown]

NARRATIVE: CASE EVENT DATE: 20170121
